FAERS Safety Report 18248481 (Version 1)
Quarter: 2020Q3

REPORT INFORMATION
  Report Type: Report from Study
  Country: DE (occurrence: DE)
  Receive Date: 20200909
  Receipt Date: 20200909
  Transmission Date: 20201103
  Serious: Yes (Other)
  Sender: FDA-Public Use
  Company Number: DE-TEVA-2020-DE-1824511

PATIENT
  Age: 40 Year
  Sex: Male

DRUGS (1)
  1. COPAXONE [Suspect]
     Active Substance: GLATIRAMER ACETATE
     Indication: MULTIPLE SCLEROSIS
     Dates: start: 20200506, end: 20200716

REACTIONS (8)
  - Pain in jaw [Recovered/Resolved]
  - C-reactive protein increased [Recovering/Resolving]
  - Groin abscess [Recovered/Resolved]
  - Breast pain [Not Recovered/Not Resolved]
  - Lymphocyte count increased [Recovering/Resolving]
  - White blood cell count increased [Recovering/Resolving]
  - Breast dysplasia [Not Recovered/Not Resolved]
  - Noninfective sialoadenitis [Recovered/Resolved]

NARRATIVE: CASE EVENT DATE: 202005
